FAERS Safety Report 8512859-7 (Version None)
Quarter: 2012Q3

REPORT INFORMATION
  Report Type: 
  Country: None (occurrence: None)
  Receive Date: 20120716
  Receipt Date: 20120710
  Transmission Date: 20120928
  Serious: Yes (Life-Threatening, Other)
  Sender: FDA-Public Use
  Company Number: FR-ASTRAZENECA-2012SE28721

PATIENT
  Age: 766 Month
  Sex: Female
  Weight: 55 kg

DRUGS (7)
  1. QUETIAPINE FUMARATE [Suspect]
     Indication: DEPRESSION
     Route: 048
     Dates: start: 20120403, end: 20120401
  2. QUETIAPINE FUMARATE [Suspect]
     Route: 048
     Dates: start: 20120401, end: 20120426
  3. LANSOYL [Concomitant]
     Indication: CONSTIPATION
     Route: 048
     Dates: start: 20120405, end: 20120420
  4. SULFARLEM [Concomitant]
     Indication: DRY MOUTH
     Route: 048
     Dates: start: 20120405
  5. LORAZEPAM [Concomitant]
     Indication: ANXIETY
     Route: 048
     Dates: start: 20120403
  6. MARSILID PHOSPHATE TAB [Concomitant]
     Indication: DEPRESSION
     Route: 048
     Dates: start: 20120411, end: 20120510
  7. TERCIAN [Concomitant]
     Indication: ANXIETY
     Route: 048
     Dates: start: 20120405, end: 20120424

REACTIONS (4)
  - ORTHOSTATIC HYPOTENSION [None]
  - MALAISE [None]
  - FALL [None]
  - FRACTURE [None]
